FAERS Safety Report 7573452-6 (Version None)
Quarter: 2011Q2

REPORT INFORMATION
  Report Type: 
  Country: None (occurrence: None)
  Receive Date: 20110627
  Receipt Date: 20110603
  Transmission Date: 20111010
  Serious: No
  Sender: FDA-Public Use
  Company Number: US-B.I. PHARMACEUTICALS,INC./RIDGEFIELD-2011-BP-13249BP

PATIENT
  Sex: Male

DRUGS (17)
  1. SPIRIVA [Suspect]
     Indication: EMPHYSEMA
     Dosage: 18 MCG
     Route: 055
     Dates: start: 20110511
  2. CORTIZONE 10 PLUS [Concomitant]
  3. LOVAZA [Concomitant]
  4. OCEAN NASAL SPRAY [Concomitant]
     Indication: PROPHYLAXIS
  5. COMBIVENT ORAL INHALER [Concomitant]
     Route: 055
  6. ADVAIR DISKUS 100/50 [Concomitant]
     Dosage: 1 PUF
     Route: 055
  7. TERAZOSIN HCL [Concomitant]
     Indication: BENIGN PROSTATIC HYPERPLASIA
     Dosage: 2 MG
  8. LISINOPRIL [Concomitant]
     Indication: HYPERTENSION
     Dosage: 10 MG
  9. ASPIRIN [Concomitant]
     Indication: PROPHYLAXIS
     Dosage: 81 MG
  10. ALBUTEROL SULFATE AUTOHALER [Concomitant]
     Indication: EMPHYSEMA
  11. IRON FREE VITA-MIN 75 MULTIPLE [Concomitant]
     Indication: PROPHYLAXIS
  12. GOLD BOND MEDICATED TRIPLE ACTION POWDER [Concomitant]
  13. OMEPRAZOLE [Concomitant]
     Indication: GASTROOESOPHAGEAL REFLUX DISEASE
     Dosage: 30 MG
  14. ALBUTEROL SULFATE AUTOHALER [Concomitant]
     Route: 055
  15. ECONAZOLE NITRATE [Concomitant]
  16. PRIBIOTIC ULTIMATE FLORA SENIOR FORMULA 30 BILLION [Concomitant]
  17. VITAMIN D [Concomitant]

REACTIONS (2)
  - COUGH [None]
  - DYSPNOEA [None]
